FAERS Safety Report 6085766-X (Version None)
Quarter: 2009Q1

REPORT INFORMATION
  Report Type: 
  Country: None (occurrence: None)
  Receive Date: 20090220
  Receipt Date: 20090212
  Transmission Date: 20090719
  Serious: Yes (Death, Hospitalization)
  Sender: FDA-Public Use
  Company Number: US-BIOGENIDEC-2009BI001970

PATIENT
  Age: 44 Year
  Sex: Female
  Weight: 42 kg

DRUGS (28)
  1. NATALIZUMAB [Suspect]
     Indication: MULTIPLE SCLEROSIS
     Route: 042
     Dates: start: 20071105, end: 20081203
  2. BACLOFEN [Concomitant]
     Indication: MUSCLE SPASTICITY
     Dates: start: 20010101
  3. EFFEXOR XR [Concomitant]
     Indication: DEPRESSION
     Dates: start: 19920101
  4. WELLBUTRIN XL [Concomitant]
     Indication: DEPRESSION
     Dates: start: 20070501
  5. NEURONTIN [Concomitant]
     Indication: NEURALGIA
     Dates: start: 20080101
  6. PROPANOLOL HCL [Concomitant]
     Indication: TREMOR
     Dates: start: 20071127
  7. PROVIGIL [Concomitant]
     Indication: FATIGUE
     Dates: start: 20081028
  8. PRIMIDONE [Concomitant]
     Indication: TREMOR
     Dates: start: 20080911
  9. BONIVA [Concomitant]
     Dates: start: 20071001
  10. OXYGENICS [Concomitant]
     Indication: ROUTINE HEALTH MAINTENANCE
     Dates: start: 20060101
  11. MULTI-VITAMIN [Concomitant]
     Indication: ROUTINE HEALTH MAINTENANCE
     Dates: start: 20060101
  12. GLA FORTE [Concomitant]
     Indication: ROUTINE HEALTH MAINTENANCE
     Dates: start: 20060101
  13. SENEKOT-S [Concomitant]
     Indication: CONSTIPATION
     Dates: start: 20081028
  14. ESTROVEN [Concomitant]
     Dates: start: 20060101
  15. OXYCODONE [Concomitant]
     Indication: PAIN
     Dates: start: 20080901
  16. PYRIDIUM [Concomitant]
     Indication: DYSURIA
     Dates: start: 20080422
  17. CIPRO [Concomitant]
     Indication: PROPHYLAXIS URINARY TRACT INFECTION
     Dates: start: 20080515
  18. AMBIEN CR [Concomitant]
     Indication: INSOMNIA
     Dates: start: 20080301
  19. KLONOPIN [Concomitant]
     Indication: DEPRESSION
     Dates: start: 20080701
  20. TRAMADOL HCL [Concomitant]
     Dates: start: 20080731
  21. HYTRIN [Concomitant]
     Indication: NEUROGENIC BLADDER
     Dates: start: 20080820
  22. STOOL SOFTENER [Concomitant]
     Indication: CONSTIPATION
  23. FIBER LAX [Concomitant]
     Indication: CONSTIPATION
  24. PROBIOTI COMPLEX [Concomitant]
     Indication: ROUTINE HEALTH MAINTENANCE
     Dates: start: 20080701
  25. TYLENOL [Concomitant]
     Indication: HEADACHE
     Dates: start: 20070101
  26. CYMBALTA [Concomitant]
     Indication: DEPRESSION
     Dates: start: 20080801
  27. OXYTROL [Concomitant]
     Indication: NEUROGENIC BLADDER
     Dates: start: 20081030
  28. HEPARIN [Concomitant]
     Dates: start: 20081030

REACTIONS (2)
  - MALNUTRITION [None]
  - TOXIC ENCEPHALOPATHY [None]
